FAERS Safety Report 18847642 (Version 2)
Quarter: 2021Q1

REPORT INFORMATION
  Report Type: Spontaneous
  Country: US (occurrence: US)
  Receive Date: 20210204
  Receipt Date: 20210303
  Transmission Date: 20210419
  Serious: Yes (Other)
  Sender: FDA-Public Use
  Company Number: US-BAYER-2021-043772

PATIENT
  Age: 35 Year
  Sex: Female

DRUGS (1)
  1. MIRENA [Suspect]
     Active Substance: LEVONORGESTREL
     Indication: CONTRACEPTION
     Dosage: 20?G PER DAY, CONTINUOUSLY
     Route: 015
     Dates: start: 20200515, end: 20200522

REACTIONS (6)
  - Uterine perforation [Recovered/Resolved]
  - Gait disturbance [None]
  - Procedural pain [None]
  - Abdominal pain [None]
  - Complication of device removal [None]
  - Rectal spasm [None]

NARRATIVE: CASE EVENT DATE: 20200519
